FAERS Safety Report 6710415-4 (Version None)
Quarter: 2010Q2

REPORT INFORMATION
  Report Type: 
  Country: None (occurrence: None)
  Receive Date: 20100504
  Receipt Date: 20100422
  Transmission Date: 20101027
  Serious: Yes (Other)
  Sender: FDA-Public Use
  Company Number: ES-PFIZER INC-2010051387

PATIENT
  Sex: Male

DRUGS (1)
  1. LYRICA [Suspect]
     Indication: GENERALISED ANXIETY DISORDER
     Dosage: 25 MG
     Dates: start: 20100101

REACTIONS (5)
  - ASTHENIA [None]
  - INSOMNIA [None]
  - LIBIDO DECREASED [None]
  - MENTAL IMPAIRMENT [None]
  - MUSCLE RIGIDITY [None]
